FAERS Safety Report 7368717-7 (Version None)
Quarter: 2011Q1

REPORT INFORMATION
  Report Type: 
  Country: None (occurrence: None)
  Receive Date: 20110323
  Receipt Date: 20100909
  Transmission Date: 20110831
  Serious: Yes (Hospitalization, Other)
  Sender: FDA-Public Use
  Company Number: US-BAYER-201026185NA

PATIENT
  Sex: Female
  Weight: 59 kg

DRUGS (3)
  1. SINGULAIR [Concomitant]
  2. YASMIN [Suspect]
     Indication: PRODUCT USED FOR UNKNOWN INDICATION
     Route: 048
     Dates: start: 20060601, end: 20080901
  3. YAZ [Suspect]
     Indication: MENSTRUATION IRREGULAR
     Dosage: UNK UNK, UNK
     Route: 048
     Dates: start: 20060601, end: 20081201

REACTIONS (11)
  - NAUSEA [None]
  - ANXIETY [None]
  - BILIARY DYSKINESIA [None]
  - PROCEDURAL PAIN [None]
  - GASTROINTESTINAL DISORDER [None]
  - VOMITING [None]
  - CHEST PAIN [None]
  - BACK PAIN [None]
  - CHOLECYSTITIS CHRONIC [None]
  - PAIN [None]
  - GALLBLADDER DISORDER [None]
